FAERS Safety Report 5967931-2 (Version None)
Quarter: 2008Q4

REPORT INFORMATION
  Report Type: 
  Country: None (occurrence: None)
  Receive Date: 20081126
  Receipt Date: 20081117
  Transmission Date: 20090506
  Serious: Yes (Hospitalization)
  Sender: FDA-Public Use
  Company Number: US-BIOGENIDEC-2008BI031926

PATIENT
  Sex: Female

DRUGS (1)
  1. AVONEX [Suspect]
     Route: 030

REACTIONS (1)
  - OBSTETRIC PROCEDURE COMPLICATION [None]
